FAERS Safety Report 13658291 (Version 1)
Quarter: 2017Q2

REPORT INFORMATION
  Report Type: Report from Study
  Country: GR (occurrence: GR)
  Receive Date: 20170616
  Receipt Date: 20170616
  Transmission Date: 20170830
  Serious: Yes (Other)
  Sender: FDA-Public Use
  Company Number: GR-ROCHE-1949262

PATIENT

DRUGS (2)
  1. VEMURAFENIB [Suspect]
     Active Substance: VEMURAFENIB
     Indication: METASTATIC MALIGNANT MELANOMA
     Route: 065
     Dates: start: 201511, end: 201702
  2. COBIMETINIB [Suspect]
     Active Substance: COBIMETINIB
     Indication: METASTATIC MALIGNANT MELANOMA
     Route: 065
     Dates: start: 201511, end: 201702

REACTIONS (10)
  - Rash maculo-papular [Unknown]
  - Liver function test abnormal [Unknown]
  - Chorioretinopathy [Unknown]
  - Dermatitis acneiform [Unknown]
  - Photosensitivity reaction [Unknown]
  - Myalgia [Unknown]
  - Keratoacanthoma [Unknown]
  - Diarrhoea [Unknown]
  - Arthralgia [Unknown]
  - Blood creatine phosphokinase increased [Unknown]
